FAERS Safety Report 12651342 (Version 3)
Quarter: 2016Q3

REPORT INFORMATION
  Report Type: Report from Study
  Country: TW (occurrence: TW)
  Receive Date: 20160815
  Receipt Date: 20160916
  Transmission Date: 20161109
  Serious: Yes (Hospitalization, Other)
  Sender: FDA-Public Use
  Company Number: TW-ROCHE-1813786

PATIENT
  Age: 62 Year
  Sex: Female
  Weight: 48.4 kg

DRUGS (6)
  1. 5-FLUOROURACIL [Concomitant]
     Active Substance: FLUOROURACIL
     Indication: COLORECTAL CANCER METASTATIC
     Dosage: 1000 MG/20 ML/VIAL?2240 MG IF ONCE IN NS 500ML
     Route: 042
     Dates: start: 20160227
  2. AVASTIN [Suspect]
     Active Substance: BEVACIZUMAB
     Indication: COLORECTAL CANCER METASTATIC
     Dosage: STRENGTH: 100 MG/VIAL?DOSE: 5 MG/KG?230 MG IF ONCE IN NS 250 ML
     Route: 042
     Dates: start: 20160227
  3. LEUCOVORIN CALCIUM. [Concomitant]
     Active Substance: LEUCOVORIN CALCIUM
     Indication: COLORECTAL CANCER METASTATIC
     Dosage: 300 MG IN NS 500ML
     Route: 042
     Dates: start: 20160227
  4. OXALIP [Concomitant]
     Indication: COLORECTAL CANCER METASTATIC
     Dosage: STRENGTH: 50 MG/10 ML/VIAL?119 MG IF ONCE IN D5 W 500ML
     Route: 042
     Dates: start: 20160227
  5. SODIUM CHLORIDE. [Concomitant]
     Active Substance: SODIUM CHLORIDE
     Route: 042
  6. CAMPTO [Concomitant]
     Active Substance: IRINOTECAN
     Indication: COLORECTAL CANCER METASTATIC
     Dosage: 100 MG/5 ML/VIAL?252 MG IF ONCE IN NS 500ML
     Route: 042
     Dates: start: 20160227

REACTIONS (5)
  - Febrile neutropenia [Recovered/Resolved]
  - Decreased appetite [Recovered/Resolved]
  - Nausea [Recovered/Resolved]
  - Abdominal distension [Recovered/Resolved]
  - Vomiting [Recovered/Resolved]

NARRATIVE: CASE EVENT DATE: 20160705
